FAERS Safety Report 8582731-5 (Version None)
Quarter: 2012Q3

REPORT INFORMATION
  Report Type: 
  Country: None (occurrence: None)
  Receive Date: 20120809
  Receipt Date: 20120730
  Transmission Date: 20120928
  Serious: Yes (Life-Threatening, Hospitalization)
  Sender: FDA-Public Use
  Company Number: US-BRISTOL-MYERS SQUIBB COMPANY-16824765

PATIENT
  Age: 67 Year
  Sex: Female

DRUGS (2)
  1. LETAIRIS [Suspect]
     Dosage: TABS.
     Route: 048
     Dates: start: 20120111
  2. COUMADIN [Suspect]
     Route: 065

REACTIONS (2)
  - PNEUMONIA [None]
  - RENAL DISORDER [None]
